FAERS Safety Report 26028520 (Version 2)
Quarter: 2025Q4

REPORT INFORMATION
  Report Type: Spontaneous
  Country: EU (occurrence: EU)
  Receive Date: 20251111
  Receipt Date: 20251117
  Transmission Date: 20260119
  Serious: Yes (Other)
  Sender: ASCEND THERAPEUTICS US, LLC
  Company Number: EU-Ascend Therapeutics US, LLC-2188359

PATIENT
  Age: 55 Year
  Sex: Female

DRUGS (12)
  1. ESTROGEL [Suspect]
     Active Substance: ESTRADIOL
     Indication: Hormone replacement therapy
     Dates: start: 20231115
  2. ESTROGEL [Suspect]
     Active Substance: ESTRADIOL
     Indication: Skin wrinkling
  3. ESTROGEL [Suspect]
     Active Substance: ESTRADIOL
     Indication: Depression
  4. ESTROGEL [Suspect]
     Active Substance: ESTRADIOL
     Indication: Hot flush
  5. ESTROGEL [Suspect]
     Active Substance: ESTRADIOL
     Indication: Postmenopause
  6. ESTRADIOL [Suspect]
     Active Substance: ESTRADIOL
     Dates: start: 20231115
  7. TIROSINT [Suspect]
     Active Substance: LEVOTHYROXINE SODIUM
  8. PROGESTERONE [Suspect]
     Active Substance: PROGESTERONE
  9. PROGESTERONE [Suspect]
     Active Substance: PROGESTERONE
     Dates: start: 202311
  10. ESTRADIOL [Suspect]
     Active Substance: ESTRADIOL
     Dates: start: 2025
  11. ESTRADIOL [Suspect]
     Active Substance: ESTRADIOL
     Dates: end: 2025
  12. ESTRADIOL [Suspect]
     Active Substance: ESTRADIOL

REACTIONS (29)
  - Altered state of consciousness [Not Recovered/Not Resolved]
  - Wrong technique in product usage process [Unknown]
  - Intentional underdose [Unknown]
  - Nausea [Not Recovered/Not Resolved]
  - Breast tenderness [Unknown]
  - Restlessness [Unknown]
  - Vertigo [Unknown]
  - Feeling drunk [Unknown]
  - Cyst [Recovered/Resolved]
  - Uterine leiomyoma [Recovered/Resolved]
  - Blood pressure decreased [Not Recovered/Not Resolved]
  - Nasopharyngitis [Not Recovered/Not Resolved]
  - Dysstasia [Not Recovered/Not Resolved]
  - Gait disturbance [Not Recovered/Not Resolved]
  - Crying [Not Recovered/Not Resolved]
  - Depersonalisation/derealisation disorder [Not Recovered/Not Resolved]
  - Panic attack [Not Recovered/Not Resolved]
  - Headache [Not Recovered/Not Resolved]
  - Somnolence [Not Recovered/Not Resolved]
  - Abdominal distension [Unknown]
  - Abdominal discomfort [Unknown]
  - Asthenia [Unknown]
  - Anxiety [Unknown]
  - Palpitations [Not Recovered/Not Resolved]
  - Peripheral swelling [Unknown]
  - Feeling abnormal [Unknown]
  - Fatigue [Not Recovered/Not Resolved]
  - Dyspepsia [Unknown]
  - Limb discomfort [Unknown]

NARRATIVE: CASE EVENT DATE: 20231115
